FAERS Safety Report 24140094 (Version 6)
Quarter: 2024Q4

REPORT INFORMATION
  Report Type: Report from Study
  Country: US (occurrence: US)
  Receive Date: 20240726
  Receipt Date: 20241012
  Transmission Date: 20250115
  Serious: Yes (Hospitalization, Other)
  Sender: UCB
  Company Number: US-UCBSA-2024028544

PATIENT
  Sex: Male

DRUGS (9)
  1. FINTEPLA [Suspect]
     Active Substance: FENFLURAMINE
     Indication: Lennox-Gastaut syndrome
     Dosage: 5 MILLILITER, 2X/DAY (BID)
     Dates: start: 20240222, end: 2024
  2. FINTEPLA [Suspect]
     Active Substance: FENFLURAMINE
     Dosage: UNK
     Dates: start: 2024, end: 2024
  3. FINTEPLA [Suspect]
     Active Substance: FENFLURAMINE
     Dosage: 5 MILLILITER, 2X/DAY (BID)
     Route: 048
     Dates: start: 2024, end: 2024
  4. FINTEPLA [Suspect]
     Active Substance: FENFLURAMINE
     Dosage: 6 MILLILITER, 2X/DAY (BID)
     Dates: start: 2024, end: 2024
  5. FINTEPLA [Suspect]
     Active Substance: FENFLURAMINE
     Dosage: 6 MILLILITER, 2X/DAY (BID)
     Dates: start: 2024
  6. FINTEPLA [Suspect]
     Active Substance: FENFLURAMINE
     Dosage: 6 MILLILITER, 2X/DAY (BID)
     Dates: start: 2024
  7. TRILEPTAL [Concomitant]
     Active Substance: OXCARBAZEPINE
     Indication: Product used for unknown indication
     Dosage: UNK
  8. TRILEPTAL [Concomitant]
     Active Substance: OXCARBAZEPINE
     Dosage: WEANED DOSE
     Dates: end: 2024
  9. TRILEPTAL [Concomitant]
     Active Substance: OXCARBAZEPINE
     Dosage: 13.2 MILLIGRAM, 2X/DAY (BID)
     Dates: start: 2024

REACTIONS (6)
  - Seizure [Not Recovered/Not Resolved]
  - Electroencephalogram abnormal [Recovered/Resolved]
  - Seizure [Unknown]
  - Constipation [Not Recovered/Not Resolved]
  - Weight decreased [Recovered/Resolved]
  - Medical device battery replacement [Recovered/Resolved]

NARRATIVE: CASE EVENT DATE: 20240101
